FAERS Safety Report 15368362 (Version 2)
Quarter: 2018Q3

REPORT INFORMATION
  Report Type: Spontaneous
  Country: ZA (occurrence: ZA)
  Receive Date: 20180910
  Receipt Date: 20180921
  Transmission Date: 20181010
  Serious: Yes (Other)
  Sender: FDA-Public Use
  Company Number: ZA-009507513-1809ZAF000055

PATIENT
  Age: 18 Year
  Sex: Female

DRUGS (1)
  1. IMPLANON [Suspect]
     Active Substance: ETONOGESTREL
     Dosage: 1 DF, UNK
     Route: 059
     Dates: start: 20180810, end: 20180912

REACTIONS (4)
  - Nasopharyngitis [Unknown]
  - Influenza like illness [Unknown]
  - Breathing-related sleep disorder [Unknown]
  - Respiratory arrest [Unknown]
